FAERS Safety Report 25732861 (Version 1)
Quarter: 2025Q3

REPORT INFORMATION
  Report Type: Spontaneous
  Country: JP (occurrence: JP)
  Receive Date: 20250828
  Receipt Date: 20250828
  Transmission Date: 20251020
  Serious: Yes (Other)
  Sender: BAXTER
  Company Number: JP-shionogi-202500008811

PATIENT
  Sex: Female

DRUGS (4)
  1. MESNA [Suspect]
     Active Substance: MESNA
     Indication: Cystitis haemorrhagic
     Route: 065
  2. CYCLOPHOSPHAMIDE [Suspect]
     Active Substance: CYCLOPHOSPHAMIDE
     Indication: Product used for unknown indication
     Route: 065
  3. CYCLOPHOSPHAMIDE [Suspect]
     Active Substance: CYCLOPHOSPHAMIDE
     Route: 065
  4. ISOTONIC SODIUM CHLORIDE SOLUTION [Concomitant]
     Active Substance: SODIUM CHLORIDE
     Indication: Product used for unknown indication
     Route: 065

REACTIONS (9)
  - Nephrotic syndrome [Unknown]
  - Pulmonary oedema [Unknown]
  - Lung opacity [Unknown]
  - Cold sweat [Unknown]
  - Injury [Unknown]
  - Gynaecological examination abnormal [Unknown]
  - Oedema [Unknown]
  - Dizziness [Unknown]
  - Nausea [Unknown]
